FAERS Safety Report 11985046 (Version 1)
Quarter: 2016Q1

REPORT INFORMATION
  Report Type: Spontaneous
  Country: ES (occurrence: ES)
  Receive Date: 20160201
  Receipt Date: 20160201
  Transmission Date: 20160526
  Serious: Yes (Life-Threatening, Other)
  Sender: FDA-Public Use
  Company Number: ES-HQ SPECIALTY-ES-2016INT000033

PATIENT
  Age: 51 Year
  Sex: Female

DRUGS (10)
  1. PACLITAXEL. [Suspect]
     Active Substance: PACLITAXEL
     Indication: CERVIX CARCINOMA
     Dosage: 175 MG/M2, UNK
  2. CISPLATIN. [Suspect]
     Active Substance: CISPLATIN
     Dosage: SEVERAL DOSE REDUCTIONS
  3. CISPLATIN. [Suspect]
     Active Substance: CISPLATIN
     Indication: CERVIX CARCINOMA
     Dosage: 40 MG/M2, WEEKLY
  4. CISPLATIN. [Suspect]
     Active Substance: CISPLATIN
     Dosage: 50 MG/M2, EVERY 21 DAYS
  5. PACLITAXEL. [Suspect]
     Active Substance: PACLITAXEL
     Dosage: 175 MG/M2, EVERY 21 DAYS
  6. CARBOPLATIN. [Suspect]
     Active Substance: CARBOPLATIN
     Indication: CERVIX CARCINOMA
     Dosage: 5 MG/AUC
  7. CARBOPLATIN. [Suspect]
     Active Substance: CARBOPLATIN
     Dosage: SEVERAL DOSE REDUCTIONS
  8. BEVACIZUMAB [Suspect]
     Active Substance: BEVACIZUMAB
     Indication: CERVIX CARCINOMA
     Dosage: 15 MG/KG, EVERY 21 DAYS
  9. PACLITAXEL. [Suspect]
     Active Substance: PACLITAXEL
     Dosage: SEVERAL DOSE REDUCTIONS
  10. CARBOPLATIN. [Suspect]
     Active Substance: CARBOPLATIN
     Dosage: UNK

REACTIONS (6)
  - Gastrointestinal perforation [Unknown]
  - Neurotoxicity [Unknown]
  - Intestinal obstruction [Unknown]
  - Platelet count decreased [Unknown]
  - Nausea [Unknown]
  - Abdominal pain [Unknown]
